FAERS Safety Report 5972633-2 (Version None)
Quarter: 2008Q4

REPORT INFORMATION
  Report Type: 
  Country: None (occurrence: None)
  Receive Date: 20081125
  Receipt Date: 20081110
  Transmission Date: 20090506
  Serious: Yes (Death)
  Sender: FDA-Public Use
  Company Number: KV200800324

PATIENT
  Age: 90 Year
  Sex: Female

DRUGS (5)
  1. ISOSORBIDE MONONITRATE [Suspect]
     Indication: DRUG USE FOR UNKNOWN INDICATION
  2. VERAPAMIL [Concomitant]
  3. INDAPAMIDE [Concomitant]
  4. ACTOS /01460201/ (PIOGLITAZONE) [Concomitant]
  5. GLYBURIDE [Concomitant]

REACTIONS (3)
  - CARDIAC FAILURE [None]
  - DISEASE COMPLICATION [None]
  - PNEUMONIA [None]
